FAERS Safety Report 25851943 (Version 1)
Quarter: 2025Q3

REPORT INFORMATION
  Report Type: Report from Study
  Country: MX (occurrence: MX)
  Receive Date: 20250926
  Receipt Date: 20250926
  Transmission Date: 20251020
  Serious: Yes (Death, Other)
  Sender: BRISTOL-MYERS SQUIBB COMPANY
  Company Number: MX-CELGENE-MEX-20220108347

PATIENT
  Age: 62 Year
  Sex: Male

DRUGS (2)
  1. REVLIMID [Suspect]
     Active Substance: LENALIDOMIDE
     Indication: Plasma cell myeloma
     Dates: end: 20220115
  2. REVLIMID [Suspect]
     Active Substance: LENALIDOMIDE
     Dates: start: 20210728

REACTIONS (3)
  - Cardiac arrest [Fatal]
  - Renal failure [Unknown]
  - Splenomegaly [Unknown]

NARRATIVE: CASE EVENT DATE: 20220113
